FAERS Safety Report 23431395 (Version 1)
Quarter: 2024Q1

REPORT INFORMATION
  Report Type: Spontaneous
  Country: AT (occurrence: AT)
  Receive Date: 20240123
  Receipt Date: 20240123
  Transmission Date: 20240410
  Serious: Yes (Other)
  Sender: FDA-Public Use
  Company Number: None

PATIENT
  Age: 71 Year
  Sex: Female

DRUGS (1)
  1. LOVENOX [Suspect]
     Active Substance: ENOXAPARIN SODIUM
     Indication: Thrombosis prophylaxis
     Dosage: UNK
     Route: 058

REACTIONS (2)
  - Type IV hypersensitivity reaction [Recovered/Resolved]
  - Injection site eczema [Recovered/Resolved]

NARRATIVE: CASE EVENT DATE: 20231003
